FAERS Safety Report 4991106-7 (Version None)
Quarter: 2006Q2

REPORT INFORMATION
  Report Type: 
  Country: None (occurrence: None)
  Receive Date: 20060428
  Receipt Date: 20060421
  Transmission Date: 20061013
  Serious: Yes (Hospitalization, Other)
  Sender: FDA-Public Use
  Company Number: 200514022GDS

PATIENT
  Age: 68 Year
  Sex: Male
  Weight: 75 kg

DRUGS (11)
  1. AVELOX [Suspect]
     Indication: PNEUMONIA ASPIRATION
     Dosage: 400 MG, QD; INTRAVENOUS
     Route: 042
     Dates: start: 20050607
  2. CIPRO [Concomitant]
  3. COMBIVENT [Concomitant]
  4. EFFEXOR [Concomitant]
  5. ENOXAPARIN SODIUM [Concomitant]
  6. INSULIN HUMAN REGULAR [Concomitant]
  7. LASIX [Concomitant]
  8. PANTOPRAZOLE [Concomitant]
  9. PLAVIX [Concomitant]
  10. SOTALOL HCL [Concomitant]
  11. PERPHENAZINE [Concomitant]

REACTIONS (15)
  - ALANINE AMINOTRANSFERASE INCREASED [None]
  - ANAPHYLACTOID REACTION [None]
  - ARRHYTHMIA [None]
  - ASPARTATE AMINOTRANSFERASE INCREASED [None]
  - BLOOD UREA INCREASED [None]
  - BODY TEMPERATURE INCREASED [None]
  - CONFUSIONAL STATE [None]
  - DEPRESSED LEVEL OF CONSCIOUSNESS [None]
  - HYPOTENSION [None]
  - LEUKOCYTOSIS [None]
  - NEUTROPHILIA [None]
  - RENAL IMPAIRMENT [None]
  - TACHYCARDIA [None]
  - URINARY TRACT INFECTION [None]
  - VASODILATATION [None]
